FAERS Safety Report 21956877 (Version 1)
Quarter: 2023Q1

REPORT INFORMATION
  Report Type: Spontaneous
  Country: US (occurrence: US)
  Receive Date: 20230206
  Receipt Date: 20230206
  Transmission Date: 20230418
  Serious: Yes (Other)
  Sender: FDA-Public Use
  Company Number: US-COOPERSURGICAL, INC.-US-2023CPS000354

PATIENT
  Sex: Female

DRUGS (1)
  1. PARAGARD T 380A [Suspect]
     Active Substance: COPPER
     Indication: Product used for unknown indication
     Dosage: UNK
     Route: 015
     Dates: start: 20110118

REACTIONS (8)
  - Injury associated with device [Unknown]
  - Device breakage [Unknown]
  - Foreign body in reproductive tract [Unknown]
  - Complication of device removal [Unknown]
  - Pain [Unknown]
  - Anxiety [Unknown]
  - Reproductive complication associated with device [Unknown]
  - Device use issue [Unknown]

NARRATIVE: CASE EVENT DATE: 20210119
